FAERS Safety Report 7405941-9 (Version None)
Quarter: 2011Q2

REPORT INFORMATION
  Report Type: 
  Country: None (occurrence: None)
  Receive Date: 20110401
  Receipt Date: 20101111
  Transmission Date: 20111010
  Serious: Yes (Other)
  Sender: FDA-Public Use
  Company Number: 2011MA002839

PATIENT
  Age: 39 Year
  Sex: Female

DRUGS (10)
  1. RANITIDINE [Concomitant]
  2. MOVIPREP [Concomitant]
  3. DEXAMETHASONE [Concomitant]
  4. OXYCODONE [Concomitant]
  5. SERTRALINE HYDROCHLORIDE [Concomitant]
  6. PARACETAMOL [Concomitant]
  7. PACLITAXEL [Suspect]
     Dates: end: 20100101
  8. CHLORPHENAMINE [Concomitant]
  9. OMEPRAZOLE [Concomitant]
  10. GABAPENTIN [Concomitant]

REACTIONS (2)
  - HYPERSENSITIVITY [None]
  - WHEEZING [None]
